FAERS Safety Report 10481934 (Version 1)
Quarter: 2014Q3

REPORT INFORMATION
  Report Type: Spontaneous
  Country: US (occurrence: None)
  Receive Date: 20140908
  Receipt Date: 20140908
  Transmission Date: 20150326
  Serious: Yes (Other)
  Sender: FDA-Public Use
  Company Number: 385180

PATIENT
  Age: 55 Year
  Sex: Female
  Weight: 59.9 kg

DRUGS (5)
  1. METFORMIN [Concomitant]
     Active Substance: METFORMIN HYDROCHLORIDE
  2. PRAVASTATIN [Concomitant]
     Active Substance: PRAVASTATIN\PRAVASTATIN SODIUM
  3. ;OSARTAN [Concomitant]
  4. VICTOZA [Suspect]
     Active Substance: LIRAGLUTIDE
     Indication: DIABETES MELLITUS INADEQUATE CONTROL
     Route: 058
     Dates: start: 20130524, end: 2013
  5. PRANDINE [Concomitant]

REACTIONS (8)
  - Adnexa uteri cyst [None]
  - Heart rate increased [None]
  - Dehydration [None]
  - Diverticulitis [None]
  - Angiomyolipoma [None]
  - Diverticulum intestinal [None]
  - Gastroenteritis [None]
  - Hepatic cyst [None]

NARRATIVE: CASE EVENT DATE: 20130729
